FAERS Safety Report 9339959 (Version 1)
Quarter: 2013Q2

REPORT INFORMATION
  Report Type: Spontaneous
  Country: US (occurrence: US)
  Receive Date: 20130610
  Receipt Date: 20130610
  Transmission Date: 20140414
  Serious: No
  Sender: FDA-Public Use
  Company Number: US-ASTELLAS-2013US004393

PATIENT
  Sex: Male
  Weight: 68 kg

DRUGS (3)
  1. XTANDI [Suspect]
     Indication: PROSTATE CANCER
     Dosage: 160 MG, UID/QD
     Route: 048
     Dates: start: 20130412
  2. MORPHINE [Concomitant]
     Indication: PAIN
     Dosage: 15 MG, UID/QD
     Route: 048
  3. TEMAZEPAM [Concomitant]
     Indication: SLEEP DISORDER
     Dosage: 30 MG, UID/QD
     Route: 048

REACTIONS (2)
  - Pain in extremity [Unknown]
  - Arthralgia [Unknown]
